FAERS Safety Report 5326504-5 (Version None)
Quarter: 2007Q2

REPORT INFORMATION
  Report Type: 
  Country: None (occurrence: None)
  Receive Date: 20070516
  Receipt Date: 20070515
  Transmission Date: 20071010
  Serious: Yes (Life-Threatening, Hospitalization, Disabling)
  Sender: FDA-Public Use
  Company Number: US-JNJFOC-20070500707

PATIENT
  Age: 40 Year
  Sex: Male

DRUGS (27)
  1. PREZISTA [Suspect]
     Indication: HIV INFECTION
     Route: 048
  2. MK-0518/PLACEBO [Suspect]
     Indication: HIV INFECTION
     Route: 048
  3. RITONAVIR [Suspect]
     Indication: HIV INFECTION
     Route: 048
  4. TRUVADA [Suspect]
     Indication: HIV INFECTION
     Route: 048
  5. ZIDOVUDINE [Suspect]
     Indication: HIV INFECTION
     Route: 065
  6. ASPIRIN [Concomitant]
     Route: 065
  7. CALCIUM POLYCARBOPHIL [Concomitant]
     Route: 065
  8. CETIRIZINE HYDROCHLORIDE [Concomitant]
     Route: 065
  9. DRONABINOL [Concomitant]
     Route: 065
  10. EPOETIN ALPHA [Concomitant]
     Route: 065
  11. OMEPRAZOLE MAGNESIUM [Concomitant]
     Route: 065
  12. FENOFIBRATE [Concomitant]
     Route: 065
  13. FERROUS SULFATE TAB [Concomitant]
     Route: 065
  14. FLUTICASONE PROPIONATE [Concomitant]
     Route: 065
  15. IBUPROFEN [Concomitant]
     Route: 065
  16. LOPERAMIDE HYDROCHLORIDE [Concomitant]
     Route: 065
  17. NIACIN [Concomitant]
     Route: 065
  18. PROCHLORPERAZINE MALEATE [Concomitant]
     Route: 065
  19. SILDENAFIL CITRATE [Concomitant]
     Route: 065
  20. SULFAMETHOXAZOLE AND TRIMETHOPRIM [Concomitant]
     Route: 065
  21. TESTOSTERONE [Concomitant]
     Route: 065
  22. TRAZODONE HYDROCHLORIDE [Concomitant]
     Route: 065
  23. VITAMINS [Concomitant]
     Route: 065
  24. ACETAMINOPHEN [Concomitant]
     Route: 065
  25. ACETAMINOPHEN/HYDROCODONE BITARTRATE [Concomitant]
     Route: 065
  26. ACYCLOVIR [Concomitant]
     Route: 065
  27. AMOXICILLIN [Concomitant]
     Route: 065

REACTIONS (1)
  - LYMPHOMA [None]
